FAERS Safety Report 12365940 (Version 2)
Quarter: 2016Q2

REPORT INFORMATION
  Report Type: Report from Study
  Country: BR (occurrence: BR)
  Receive Date: 20160513
  Receipt Date: 20160527
  Transmission Date: 20160815
  Serious: Yes (Hospitalization, Other)
  Sender: FDA-Public Use
  Company Number: BR-ORION CORPORATION ORION PHARMA-ENTC2016-0230

PATIENT
  Age: 86 Year
  Sex: Female
  Weight: 55 kg

DRUGS (1)
  1. STALEVO [Suspect]
     Active Substance: CARBIDOPA\ENTACAPONE\LEVODOPA
     Indication: PARKINSON^S DISEASE
     Dosage: STRENGTH: 100/25/200 MG
     Route: 048

REACTIONS (10)
  - Product taste abnormal [Not Recovered/Not Resolved]
  - Femur fracture [Recovering/Resolving]
  - Pneumonia [Recovered/Resolved]
  - Angina pectoris [Recovering/Resolving]
  - Bacterial infection [Unknown]
  - Dementia Alzheimer^s type [Not Recovered/Not Resolved]
  - Urinary tract infection [Recovered/Resolved]
  - Catarrh [Recovering/Resolving]
  - Product quality issue [Unknown]
  - Upper limb fracture [Recovered/Resolved]

NARRATIVE: CASE EVENT DATE: 201601
